FAERS Safety Report 5923351-8 (Version None)
Quarter: 2008Q4

REPORT INFORMATION
  Report Type: 
  Country: None (occurrence: None)
  Receive Date: 20081020
  Receipt Date: 20081014
  Transmission Date: 20090506
  Serious: Yes (Hospitalization, Other)
  Sender: FDA-Public Use
  Company Number: JP-BRISTOL-MYERS SQUIBB COMPANY-14373450

PATIENT
  Age: 58 Year
  Sex: Male

DRUGS (3)
  1. BRIPLATIN [Suspect]
     Indication: OESOPHAGEAL CARCINOMA
     Route: 041
  2. FLUOROURACIL [Concomitant]
  3. TAXOTERE [Concomitant]
     Route: 042

REACTIONS (4)
  - CYTOMEGALOVIRUS GASTROENTERITIS [None]
  - PARANEOPLASTIC PEMPHIGUS [None]
  - SEPTIC SHOCK [None]
  - SHOCK HAEMORRHAGIC [None]
